FAERS Safety Report 18626881 (Version 1)
Quarter: 2020Q4

REPORT INFORMATION
  Report Type: Spontaneous
  Country: US (occurrence: US)
  Receive Date: 20201216
  Receipt Date: 20201216
  Transmission Date: 20210114
  Serious: Yes (Hospitalization)
  Sender: FDA-Public Use
  Company Number: None

PATIENT
  Age: 67 Year
  Sex: Female
  Weight: 106.59 kg

DRUGS (2)
  1. BAMLANIVIMAB. [Concomitant]
     Active Substance: BAMLANIVIMAB
     Dates: start: 20201204, end: 20201204
  2. BAMLANIVIMAB. [Suspect]
     Active Substance: BAMLANIVIMAB

REACTIONS (8)
  - Pulmonary embolism [None]
  - Pleural effusion [None]
  - Hepatic steatosis [None]
  - COVID-19 pneumonia [None]
  - Lung opacity [None]
  - Dyspnoea [None]
  - Myocardial strain [None]
  - Pneumonia [None]

NARRATIVE: CASE EVENT DATE: 20201209
